FAERS Safety Report 5482919-6 (Version None)
Quarter: 2007Q4

REPORT INFORMATION
  Report Type: 
  Country: None (occurrence: None)
  Receive Date: 20071011
  Receipt Date: 20071002
  Transmission Date: 20080405
  Serious: Yes (Other)
  Sender: FDA-Public Use
  Company Number: US-SANOFI-SYNTHELABO-A03200702420

PATIENT
  Sex: Male
  Weight: 117.9 kg

DRUGS (4)
  1. LOPRESSOR [Concomitant]
     Indication: DRUG USE FOR UNKNOWN INDICATION
     Dosage: UNK
     Route: 065
  2. LEXAPRO [Concomitant]
     Indication: DRUG USE FOR UNKNOWN INDICATION
     Dosage: UNK
     Route: 065
  3. DIOVAN [Concomitant]
     Indication: DRUG USE FOR UNKNOWN INDICATION
     Dosage: UNK
     Route: 065
  4. AMBIEN [Suspect]
     Indication: INSOMNIA
     Route: 048
     Dates: start: 20020206, end: 20060203

REACTIONS (12)
  - ABNORMAL DREAMS [None]
  - AMNESIA [None]
  - DYSSTASIA [None]
  - EYE DISORDER [None]
  - HAEMORRHAGE [None]
  - IMPAIRED DRIVING ABILITY [None]
  - INCOHERENT [None]
  - JOINT INJURY [None]
  - LEGAL PROBLEM [None]
  - NIGHTMARE [None]
  - PARANOIA [None]
  - SOMNAMBULISM [None]
